FAERS Safety Report 8167190 (Version 2)
Quarter: 2012Q4

REPORT INFORMATION
  Report Type: 
  Country: BE (occurrence: BE)
  Receive Date: 20111004
  Receipt Date: 20121017
  Transmission Date: 20130627
  Serious: Yes (Hospitalization)
  Sender: FDA-Public Use
  Company Number: BE-AMGEN-BELSP2011050318

PATIENT
  Age: 73 Year
  Sex: Male
  Weight: 53 kg

DRUGS (6)
  1. NEUPOGEN [Suspect]
     Indication: CHEMOTHERAPY
     Dosage: UNK UNK, qd
     Route: 058
     Dates: start: 20110919, end: 20110921
  2. TAXOTERE [Concomitant]
     Indication: LUNG NEOPLASM MALIGNANT
     Dosage: UNK
     Dates: start: 20110610
  3. TAXOTERE [Concomitant]
     Indication: LUNG NEOPLASM MALIGNANT
  4. TAZOCIN [Concomitant]
     Indication: FEBRILE NEUTROPENIA
     Dosage: UNK
     Dates: start: 201109
  5. AMUKIN [Concomitant]
     Indication: FEBRILE NEUTROPENIA
     Dosage: UNK
     Dates: start: 201109
  6. RED BLOOD CELLS [Concomitant]
     Indication: ANAEMIA
     Dosage: UNK
     Dates: start: 201109

REACTIONS (4)
  - Interstitial lung disease [Recovered/Resolved]
  - Throat irritation [Unknown]
  - Productive cough [Unknown]
  - Aphthous stomatitis [Unknown]
